FAERS Safety Report 9278470 (Version 1)
Quarter: 2013Q2

REPORT INFORMATION
  Report Type: Report from Study
  Country: US (occurrence: US)
  Receive Date: 20130508
  Receipt Date: 20130508
  Transmission Date: 20140414
  Serious: Yes (Hospitalization)
  Sender: FDA-Public Use
  Company Number: US-JNJFOC-20130417513

PATIENT
  Sex: Female

DRUGS (7)
  1. REMICADE [Suspect]
     Indication: PRODUCT USED FOR UNKNOWN INDICATION
     Route: 042
  2. BENICAR [Concomitant]
     Route: 065
  3. GLUMETZA [Concomitant]
     Indication: DIABETES MELLITUS
     Route: 065
  4. BENADRYL [Concomitant]
     Indication: PREMEDICATION
     Route: 065
  5. METHOTREXATE [Concomitant]
     Route: 065
  6. CELEBREX [Concomitant]
     Route: 065
  7. CELEBREX [Concomitant]
     Route: 065

REACTIONS (3)
  - Loss of consciousness [Recovered/Resolved]
  - Dizziness [Unknown]
  - Erythema [Unknown]
